FAERS Safety Report 7454509-7 (Version None)
Quarter: 2011Q2

REPORT INFORMATION
  Report Type: 
  Country: None (occurrence: None)
  Receive Date: 20110503
  Receipt Date: 20110425
  Transmission Date: 20111010
  Serious: Yes (Other)
  Sender: FDA-Public Use
  Company Number: PHHY2011US26012

PATIENT
  Sex: Female
  Weight: 90.703 kg

DRUGS (2)
  1. TOPRAL [Concomitant]
  2. RECLAST [Suspect]
     Dosage: UNK
     Route: 042
     Dates: start: 20091201

REACTIONS (2)
  - IRRITABLE BOWEL SYNDROME [None]
  - DIARRHOEA [None]
